FAERS Safety Report 25406492 (Version 1)
Quarter: 2025Q2

REPORT INFORMATION
  Report Type: Spontaneous
  Country: TW (occurrence: TW)
  Receive Date: 20250606
  Receipt Date: 20250606
  Transmission Date: 20250716
  Serious: Yes (Other)
  Sender: MERCK SHARP & DOHME LLC
  Company Number: TW-009507513-2290046

PATIENT
  Age: 61 Year
  Sex: Female

DRUGS (2)
  1. PEMBROLIZUMAB [Suspect]
     Active Substance: PEMBROLIZUMAB
     Indication: Lung adenocarcinoma stage IV
     Route: 065
  2. PEMETREXED [Concomitant]
     Active Substance: PEMETREXED

REACTIONS (6)
  - Cytokine release syndrome [Recovered/Resolved]
  - Immune-mediated hepatic disorder [Recovered/Resolved]
  - Hypotension [Recovered/Resolved]
  - Thrombocytopenia [Recovered/Resolved]
  - Immune-mediated renal disorder [Recovered/Resolved]
  - Respiratory failure [Recovered/Resolved]
